FAERS Safety Report 4539187-9 (Version None)
Quarter: 2004Q4

REPORT INFORMATION
  Report Type: 
  Country: None (occurrence: None)
  Receive Date: 20041223
  Receipt Date: 20041207
  Transmission Date: 20050328
  Serious: Yes (Hospitalization)
  Sender: FDA-Public Use
  Company Number: 105656ISR

PATIENT
  Age: 64 Year
  Sex: Male

DRUGS (1)
  1. BACTRIM [Suspect]
     Indication: EPIDIDYMITIS
     Route: 048
     Dates: start: 20030903, end: 20030908

REACTIONS (20)
  - BEHCET'S SYNDROME [None]
  - BORRELIA INFECTION [None]
  - CEREBRAL HAEMORRHAGE [None]
  - CEREBROVASCULAR DISORDER [None]
  - CHLAMYDIAL INFECTION [None]
  - DIFFICULTY IN WALKING [None]
  - DIPLOPIA [None]
  - DYSKINESIA [None]
  - EYE DISORDER [None]
  - FATIGUE [None]
  - HAEMORRHAGE [None]
  - HEADACHE [None]
  - HYPONATRAEMIA [None]
  - LOSS OF CONSCIOUSNESS [None]
  - MENINGITIS ASEPTIC [None]
  - OPTIC NERVE DISORDER [None]
  - PLATELET AGGREGATION DECREASED [None]
  - SCAR [None]
  - SPEECH DISORDER [None]
  - THROMBOCYTOPENIA [None]
